FAERS Safety Report 16739591 (Version 2)
Quarter: 2021Q4

REPORT INFORMATION
  Report Type: Spontaneous
  Country: ES (occurrence: ES)
  Receive Date: 20190826
  Receipt Date: 20211028
  Transmission Date: 20220303
  Serious: Yes (Hospitalization)
  Sender: FDA-Public Use
  Company Number: ES-AEMPS-531920

PATIENT
  Age: 50 Year
  Sex: Female

DRUGS (4)
  1. ACETAMINOPHEN [Interacting]
     Active Substance: ACETAMINOPHEN
     Indication: Pain
     Dosage: 3 GRAM, DAILY
     Route: 048
     Dates: start: 20150820, end: 20180707
  2. HYDROCHLOROTHIAZIDE\LOSARTAN [Interacting]
     Active Substance: HYDROCHLOROTHIAZIDE\LOSARTAN
     Indication: Hypertension
     Dosage: 100 MILLIGRAM, DAILY
     Route: 048
     Dates: start: 20180605, end: 20180707
  3. OMEPRAZOLE [Concomitant]
     Active Substance: OMEPRAZOLE
     Indication: Gastrointestinal disorder prophylaxis
     Dosage: 20 MILLIGRAM, ONCE A DAY
     Route: 048
     Dates: start: 20180202
  4. ESCITALOPRAM [Concomitant]
     Active Substance: ESCITALOPRAM OXALATE
     Indication: Anxiety
     Dosage: 10 MILLIGRAM, ONCE A DAY
     Route: 048
     Dates: start: 20180409

REACTIONS (1)
  - Hyponatraemia [Recovered/Resolved]

NARRATIVE: CASE EVENT DATE: 20180707
